FAERS Safety Report 10170319 (Version 1)
Quarter: 2014Q2

REPORT INFORMATION
  Report Type: Spontaneous
  Country: US (occurrence: US)
  Receive Date: 20140513
  Receipt Date: 20140513
  Transmission Date: 20141212
  Serious: Yes (Other)
  Sender: FDA-Public Use
  Company Number: US-PFIZER INC-2014126573

PATIENT
  Age: 62 Year
  Sex: Female
  Weight: 104 kg

DRUGS (14)
  1. SOLU-MEDROL [Suspect]
     Indication: MULTIPLE SCLEROSIS RELAPSE
     Dosage: UNK
     Route: 042
     Dates: start: 20140415, end: 20140417
  2. SOLU-MEDROL [Suspect]
     Indication: OPTIC NEURITIS
  3. AMPYRA [Suspect]
     Indication: GAIT DISTURBANCE
     Dosage: 10 MG, 2X/DAY (BID)
     Route: 048
     Dates: start: 201310
  4. AMPYRA [Suspect]
     Indication: MULTIPLE SCLEROSIS RELAPSE
  5. FLEXERIL [Suspect]
     Indication: PRODUCT USED FOR UNKNOWN INDICATION
     Dosage: UNK
     Route: 048
  6. REBIF [Concomitant]
     Dosage: 44 MG, 3 TIMES WEEKLY
  7. ROPINIROLE [Concomitant]
     Dosage: 0.5 MG, 2X/DAY
  8. FERROUS SULFATE [Concomitant]
     Dosage: 325 MG, 2X/DAY
  9. LISINOPRIL DIHYDRATE [Concomitant]
     Dosage: 20 MG, 2X/DAY
  10. PROTONIX [Concomitant]
     Dosage: 40 MG, 2X/DAY
  11. GABAPENTIN [Concomitant]
     Dosage: 600 MG, ONE TO TWO TIMES DAILY
  12. METFORMIN HCL [Concomitant]
     Dosage: 1 G, 2X/DAY
  13. VITAMIN D3 [Concomitant]
     Dosage: 50000 IU, WEEKLY
  14. TYLENOL EXTRA STRENGTH [Concomitant]
     Dosage: UNK

REACTIONS (11)
  - Haematemesis [Recovering/Resolving]
  - Barrett^s oesophagus [Recovering/Resolving]
  - Multiple sclerosis relapse [Recovering/Resolving]
  - Optic neuritis [Recovering/Resolving]
  - Blood glucose increased [Recovering/Resolving]
  - Chest discomfort [Recovering/Resolving]
  - Diarrhoea [Recovering/Resolving]
  - Therapeutic response changed [Recovering/Resolving]
  - Headache [Recovering/Resolving]
  - Hypersomnia [Recovering/Resolving]
  - Malaise [Recovering/Resolving]
